FAERS Safety Report 6850765-4 (Version None)
Quarter: 2010Q3

REPORT INFORMATION
  Report Type: 
  Country: None (occurrence: None)
  Receive Date: 20100716
  Receipt Date: 20100709
  Transmission Date: 20110219
  Serious: Yes (Hospitalization, Other)
  Sender: FDA-Public Use
  Company Number: US-MERCK-0704USA04326

PATIENT
  Age: 47 Year
  Sex: Female
  Weight: 62 kg

DRUGS (11)
  1. FOSAMAX [Suspect]
     Indication: OSTEOPOROSIS
     Route: 048
     Dates: start: 20031009, end: 20041001
  2. SYNTHROID [Concomitant]
     Route: 048
  3. VIVELLE [Concomitant]
     Route: 061
     Dates: start: 20030101
  4. CALTRATE + D [Concomitant]
     Route: 048
  5. HYDROCHLOROTHIAZIDE [Concomitant]
     Indication: FLUID RETENTION
     Route: 065
  6. VIOXX [Concomitant]
     Route: 048
  7. VITAMIN E [Concomitant]
     Route: 065
  8. CELESTONE [Concomitant]
     Indication: SEASONAL ALLERGY
     Route: 065
     Dates: start: 19840101
  9. MIACALCIN [Concomitant]
     Indication: PAIN
     Route: 055
     Dates: start: 20030901
  10. FORTEO [Suspect]
     Indication: OSTEOPENIA
     Route: 065
     Dates: start: 20050101
  11. FORTEO [Suspect]
     Route: 065
     Dates: start: 20060401

REACTIONS (35)
  - ANXIETY [None]
  - AUTOIMMUNE THYROIDITIS [None]
  - BONE DENSITY DECREASED [None]
  - BONE DISORDER [None]
  - BREAST ENLARGEMENT [None]
  - CHEST PAIN [None]
  - DEPRESSION [None]
  - DRUG INTOLERANCE [None]
  - DYSLIPIDAEMIA [None]
  - EATING DISORDER [None]
  - FATIGUE [None]
  - FEELING ABNORMAL [None]
  - GASTRITIS [None]
  - GASTROOESOPHAGEAL REFLUX DISEASE [None]
  - HEADACHE [None]
  - HIATUS HERNIA [None]
  - INTERVERTEBRAL DISC DEGENERATION [None]
  - KYPHOSIS [None]
  - LIPOMA [None]
  - LOOSE TOOTH [None]
  - LORDOSIS [None]
  - MIGRAINE [None]
  - NEPHROLITHIASIS [None]
  - OSTEOARTHRITIS [None]
  - OSTEONECROSIS OF JAW [None]
  - PAIN [None]
  - RENAL CYST [None]
  - SCOLIOSIS [None]
  - SPEECH DISORDER [None]
  - SPINAL HAEMANGIOMA [None]
  - SPONDYLOLYSIS [None]
  - TEMPOROMANDIBULAR JOINT SYNDROME [None]
  - THROAT IRRITATION [None]
  - TOOTHACHE [None]
  - WEIGHT INCREASED [None]
